FAERS Safety Report 11966723 (Version 1)
Quarter: 2016Q1

REPORT INFORMATION
  Report Type: Spontaneous
  Country: DK (occurrence: CA)
  Receive Date: 20160127
  Receipt Date: 20160127
  Transmission Date: 20160526
  Serious: Yes (Hospitalization, Disabling, Other)
  Sender: FDA-Public Use
  Company Number: CA-FRI-1000082246

PATIENT
  Age: 30 Year
  Sex: Female
  Weight: 65.32 kg

DRUGS (3)
  1. RISPERIDONE. [Concomitant]
     Active Substance: RISPERIDONE
     Indication: PRODUCT USED FOR UNKNOWN INDICATION
     Route: 065
  2. CELEXA [Suspect]
     Active Substance: CITALOPRAM HYDROBROMIDE
     Indication: DEPRESSION
     Dosage: 60 MG
     Route: 048
  3. CELEXA [Suspect]
     Active Substance: CITALOPRAM HYDROBROMIDE
     Route: 048

REACTIONS (11)
  - Confusional state [Recovered/Resolved]
  - Thinking abnormal [Recovered/Resolved]
  - Suicidal ideation [Recovered/Resolved]
  - Feeling abnormal [Recovered/Resolved]
  - Migraine [Recovered/Resolved]
  - Panic reaction [Recovered/Resolved]
  - Blood pressure increased [Recovered/Resolved]
  - Heart rate increased [Recovered/Resolved]
  - Anxiety [Recovered/Resolved]
  - Bipolar disorder [Recovered/Resolved]
  - Violence-related symptom [Recovered/Resolved]
